FAERS Safety Report 4691898-0 (Version None)
Quarter: 2005Q2

REPORT INFORMATION
  Report Type: 
  Country: None (occurrence: None)
  Receive Date: 20050614
  Receipt Date: 20050601
  Transmission Date: 20051028
  Serious: Yes (Hospitalization, Other)
  Sender: FDA-Public Use
  Company Number: 2005076362

PATIENT
  Age: 4 Year
  Sex: Male
  Weight: 19.5047 kg

DRUGS (2)
  1. ZITHROMAX [Suspect]
     Indication: PHARYNGITIS STREPTOCOCCAL
     Dosage: 200 MG (1 IN 1 D) ORAL
     Route: 048
     Dates: start: 20050510
  2. MOTRIN [Concomitant]

REACTIONS (2)
  - HAEMORRHAGE [None]
  - TONSILLITIS [None]
